FAERS Safety Report 24668946 (Version 1)
Quarter: 2024Q4

REPORT INFORMATION
  Report Type: Report from Study
  Country: DE (occurrence: DE)
  Receive Date: 20241127
  Receipt Date: 20241127
  Transmission Date: 20250115
  Serious: Yes (Other)
  Sender: UCB
  Company Number: DE-UCBSA-2024053832

PATIENT
  Age: 55 Year
  Sex: Female
  Weight: 86 kg

DRUGS (11)
  1. BIMEKIZUMAB [Suspect]
     Active Substance: BIMEKIZUMAB
     Indication: Axial spondyloarthritis
     Dosage: 160 MILLIGRAM, EV 4 WEEKS
     Dates: start: 20240527
  2. VIGANTOL [COLECALCIFEROL-CHOLESTERIN] [Concomitant]
     Indication: Vitamin D deficiency
     Dosage: 1000 IU
     Dates: start: 201804
  3. RAMIPRIL [Concomitant]
     Active Substance: RAMIPRIL
     Indication: Hypertension
     Dosage: 5 MILLIGRAM
     Dates: start: 2017
  4. RAMIPRIL [Concomitant]
     Active Substance: RAMIPRIL
     Indication: Hypertension
     Dosage: 5 MILLIGRAM, ONCE DAILY (QD)
     Dates: start: 2017
  5. HYDROCHLOROTHIAZIDE [Concomitant]
     Active Substance: HYDROCHLOROTHIAZIDE
     Indication: Hypertension
     Dosage: 12.5 MILLIGRAM, ONCE DAILY (QD)
     Dates: start: 2017
  6. ETORICOXIB [Concomitant]
     Active Substance: ETORICOXIB
     Indication: Pain
     Dosage: 90 MILLIGRAM, AS NEEDED
     Dates: start: 202002
  7. METAMIZOLE [Concomitant]
     Active Substance: METAMIZOLE
     Indication: Pain
     Dosage: 500 MILLIGRAM, AS NEEDED (PRN)
     Dates: start: 201809
  8. METHOTREXATE [Concomitant]
     Active Substance: METHOTREXATE
     Indication: Axial spondyloarthritis
     Dosage: 15 MILLIGRAM, WEEKLY (QW)
     Dates: start: 201911
  9. FOLIC ACID [Concomitant]
     Active Substance: FOLIC ACID
     Indication: Axial spondyloarthritis
     Dosage: 5 MILLIGRAM, WEEKLY (QW)
     Dates: start: 201908
  10. LEVOTHYROXINE SODIUM [Concomitant]
     Active Substance: LEVOTHYROXINE SODIUM
     Indication: Hypothyroidism
     Dosage: 125 MICROGRAM, ONCE DAILY (QD)
     Dates: start: 2006
  11. PENICILLIN [Concomitant]
     Active Substance: PENICILLIN
     Indication: Product used for unknown indication
     Dosage: 1.5 GRAM
     Dates: start: 20240829, end: 20240922

REACTIONS (3)
  - Erysipelas [Recovered/Resolved]
  - Arthropod bite [Unknown]
  - Erythema migrans [Recovering/Resolving]

NARRATIVE: CASE EVENT DATE: 20240715
